FAERS Safety Report 5841837-1 (Version None)
Quarter: 2008Q3

REPORT INFORMATION
  Report Type: 
  Country: None (occurrence: None)
  Receive Date: 20080812
  Receipt Date: 20080807
  Transmission Date: 20090109
  Serious: Yes (Hospitalization)
  Sender: FDA-Public Use
  Company Number: B0532277A

PATIENT
  Age: 59 Year
  Sex: Male

DRUGS (8)
  1. ZOPHREN [Suspect]
     Indication: NAUSEA
     Dosage: 8MG PER DAY
     Route: 042
     Dates: start: 20080409, end: 20080430
  2. METHYLPREDNISOLONE 16MG TAB [Suspect]
     Indication: NAUSEA
     Dosage: 70MG PER DAY
     Route: 042
     Dates: start: 20080409, end: 20080430
  3. EMEND [Suspect]
     Indication: NAUSEA
     Dosage: 125MG PER DAY
     Route: 048
     Dates: start: 20080409, end: 20080430
  4. TRAMADOL HCL [Concomitant]
     Indication: DRUG USE FOR UNKNOWN INDICATION
     Route: 048
  5. ZOLPIDEM [Concomitant]
     Route: 048
  6. OXAZEPAM [Concomitant]
     Indication: ANXIETY
     Route: 048
  7. GEMZAR [Concomitant]
     Indication: BLADDER CANCER
     Dosage: 100MGM2 SINGLE DOSE
     Route: 065
     Dates: start: 20080409
  8. CISPLATIN [Concomitant]
     Indication: BLADDER CANCER
     Dosage: 70MGM2 SINGLE DOSE
     Route: 065
     Dates: start: 20080409

REACTIONS (4)
  - ABNORMAL BEHAVIOUR [None]
  - HALLUCINATION, AUDITORY [None]
  - LOGORRHOEA [None]
  - MANIA [None]
